FAERS Safety Report 8624578-7 (Version None)
Quarter: 2012Q3

REPORT INFORMATION
  Report Type: 
  Country: None (occurrence: None)
  Receive Date: 20120827
  Receipt Date: 20120820
  Transmission Date: 20120928
  Serious: No
  Sender: FDA-Public Use
  Company Number: US-B.I. PHARMACEUTICALS,INC./RIDGEFIELD-2012-BP-04821BP

PATIENT
  Sex: Female

DRUGS (15)
  1. LUTEIN [Concomitant]
     Indication: MACULAR DEGENERATION
     Dosage: 6 MCG
     Route: 048
     Dates: start: 20100101
  2. CALCIUM D3 [Concomitant]
     Indication: VITAMIN SUPPLEMENTATION
     Route: 048
  3. SPIRIVA [Suspect]
     Indication: CHRONIC OBSTRUCTIVE PULMONARY DISEASE
     Dosage: 18 MCG
     Route: 055
     Dates: start: 20060201
  4. METOPROLOL TARTRATE [Concomitant]
     Indication: HYPERTENSION
  5. CALCIUM [Concomitant]
     Route: 048
  6. METOPROLOL TARTRATE [Concomitant]
     Indication: HEART RATE INCREASED
     Dosage: 50 MCG
     Route: 048
     Dates: start: 20040801
  7. VITAMIN D [Concomitant]
     Route: 048
  8. LUTEIN [Concomitant]
     Indication: ROUTINE HEALTH MAINTENANCE
  9. ASPIRIN [Concomitant]
     Indication: PROPHYLAXIS
     Dosage: 325 MG
     Route: 048
  10. ONE-A-DAY VITAMIN [Concomitant]
     Indication: VITAMIN SUPPLEMENTATION
     Route: 048
  11. FORADIL [Concomitant]
     Indication: ASTHMA
     Route: 055
     Dates: start: 20120309
  12. FORADIL [Concomitant]
     Indication: DYSPNOEA
  13. MAGNESIUM [Concomitant]
     Indication: VITAMIN SUPPLEMENTATION
     Dosage: 125 MG
     Route: 048
  14. LEVOTHYROXINE SODIUM [Concomitant]
     Indication: HYPOTHYROIDISM
     Dosage: 12.5 MCG
     Route: 048
     Dates: start: 20040101
  15. MULTI-VITAMIN [Concomitant]

REACTIONS (4)
  - COUGH [None]
  - HEADACHE [None]
  - BRONCHITIS [None]
  - DYSPNOEA [None]
